FAERS Safety Report 9775880 (Version 1)
Quarter: 2013Q4

REPORT INFORMATION
  Report Type: Spontaneous
  Country: ES (occurrence: ES)
  Receive Date: 20131220
  Receipt Date: 20131220
  Transmission Date: 20140711
  Serious: Yes (Other)
  Sender: FDA-Public Use
  Company Number: ES-ALEXION PHARMACEUTICALS INC.-A201304301

PATIENT
  Age: 9 Year
  Sex: Male

DRUGS (13)
  1. SOLIRIS 300MG [Suspect]
     Indication: HAEMOLYTIC URAEMIC SYNDROME
     Dosage: 600 MG, SINGLE 6 HOURS PRE-TRANSPLANT
     Route: 042
     Dates: start: 2010, end: 2010
  2. SOLIRIS 300MG [Suspect]
     Dosage: 600 MG, SINGLE WITHIN 24 HOURS OF TRANSPLANT
     Route: 042
     Dates: start: 2010, end: 2010
  3. SOLIRIS 300MG [Suspect]
     Dosage: 600 MG, QW 4 TIMES
     Route: 042
     Dates: start: 2010
  4. SOLIRIS 300MG [Suspect]
     Dosage: 600 MG, Q2W
     Route: 042
  5. SOLIRIS 300MG [Suspect]
     Dosage: 900 MG, Q2W ADJUSTED TO BODY WEIGHT 3 YEARS POST-TRANSPLANT
     Route: 042
  6. TACROLIMUS [Concomitant]
     Dosage: INDUCTION
     Dates: start: 2010, end: 2010
  7. TACROLIMUS [Concomitant]
     Dosage: POST OPERATIVE DAY 2
     Dates: start: 2010
  8. VALGANCICLOVIR [Concomitant]
     Indication: PROPHYLAXIS
     Dosage: UNK
     Dates: start: 2010
  9. BASILIXIMAB [Concomitant]
     Dosage: INDUCTION
     Dates: start: 2010
  10. PREDNISONE [Concomitant]
     Dosage: INDUCTION
  11. MYCOPHENOLATE MOFETIL [Concomitant]
     Dosage: INDUCTION
     Dates: start: 2010
  12. COTRIMOXAZOLE [Concomitant]
     Dosage: UNK
     Dates: start: 2010
  13. BENZYLPENICILLIN [Concomitant]
     Dosage: UNK

REACTIONS (4)
  - Intestinal perforation [Recovered/Resolved]
  - Vesical fistula [Recovered/Resolved]
  - Bacterial pyelonephritis [Recovered/Resolved]
  - Inappropriate schedule of drug administration [Unknown]
